FAERS Safety Report 10362077 (Version 2)
Quarter: 2014Q3

REPORT INFORMATION
  Report Type: Spontaneous
  Country: US (occurrence: US)
  Receive Date: 20140805
  Receipt Date: 20140805
  Transmission Date: 20150326
  Serious: Yes (Hospitalization)
  Sender: FDA-Public Use
  Company Number: US-UNITED THERAPEUTICS-UNT-2014-004772

PATIENT
  Age: 59 Year
  Sex: Female
  Weight: 59.9 kg

DRUGS (1)
  1. REMODULIN [Suspect]
     Active Substance: TREPROSTINIL
     Indication: COR PULMONALE CHRONIC
     Dosage: 0.056 ?G/KG, CONTINUING
     Route: 041
     Dates: start: 20121220

REACTIONS (4)
  - Sepsis [Unknown]
  - Urinary tract infection [Unknown]
  - Device related infection [Unknown]
  - Injection site infection [Unknown]

NARRATIVE: CASE EVENT DATE: 20140722
